FAERS Safety Report 11391985 (Version 2)
Quarter: 2017Q1

REPORT INFORMATION
  Report Type: Spontaneous
  Country: US (occurrence: US)
  Receive Date: 20150818
  Receipt Date: 20170301
  Transmission Date: 20170428
  Serious: Yes (Death, Other)
  Sender: FDA-Public Use
  Company Number: US-ASTRAZENECA-2015SE77991

PATIENT
  Age: 53 Year
  Sex: Female

DRUGS (1)
  1. MOVANTIK [Suspect]
     Active Substance: NALOXEGOL OXALATE
     Indication: CONSTIPATION
     Route: 048

REACTIONS (4)
  - Adverse event [Unknown]
  - Diabetes mellitus inadequate control [Unknown]
  - Cardiac failure [Fatal]
  - Myocardial infarction [Unknown]
